FAERS Safety Report 14233117 (Version 4)
Quarter: 2018Q2

REPORT INFORMATION
  Report Type: Report from Study
  Country: US (occurrence: US)
  Receive Date: 20171128
  Receipt Date: 20180416
  Transmission Date: 20180711
  Serious: Yes (Hospitalization)
  Sender: FDA-Public Use
  Company Number: US-ACTELION-A-US2017-162027

PATIENT
  Age: 75 Year
  Sex: Female
  Weight: 77.98 kg

DRUGS (4)
  1. REMODULIN [Concomitant]
     Active Substance: TREPROSTINIL
  2. ELIQUIS [Concomitant]
     Active Substance: APIXABAN
  3. SILDENAFIL. [Concomitant]
     Active Substance: SILDENAFIL
  4. OPSUMIT [Suspect]
     Active Substance: MACITENTAN
     Indication: PULMONARY ARTERIAL HYPERTENSION
     Dosage: 10 MG, QD
     Route: 048

REACTIONS (20)
  - Headache [Recovering/Resolving]
  - Abdominal discomfort [Recovering/Resolving]
  - Bacteraemia [Unknown]
  - Infection [Unknown]
  - Dyspnoea [Unknown]
  - Blood potassium increased [Unknown]
  - Pain in extremity [Recovered/Resolved]
  - Atrial fibrillation [Unknown]
  - Fluid retention [Unknown]
  - Swelling [Unknown]
  - Skin discomfort [Recovered/Resolved]
  - Nausea [Unknown]
  - Asthenia [Unknown]
  - Dyspnoea exertional [Unknown]
  - Internal haemorrhage [Unknown]
  - Catheter management [Unknown]
  - Renal disorder [Unknown]
  - Fatigue [Unknown]
  - Chest pain [Unknown]
  - Weight increased [Unknown]
